FAERS Safety Report 7490995-4 (Version None)
Quarter: 2011Q2

REPORT INFORMATION
  Report Type: 
  Country: None (occurrence: None)
  Receive Date: 20110519
  Receipt Date: 20110506
  Transmission Date: 20111010
  Serious: Yes (Life-Threatening, Hospitalization, Disabling, Other)
  Sender: FDA-Public Use
  Company Number: US-ACTELION-A-NJ2010-37997

PATIENT

DRUGS (2)
  1. TRACLEER [Suspect]
     Indication: PULMONARY ARTERIAL HYPERTENSION
     Dosage: UNK
     Route: 048
     Dates: start: 20100407
  2. CALCIUM CHANNEL BLOCKERS [Concomitant]

REACTIONS (4)
  - OEDEMA PERIPHERAL [None]
  - PULMONARY EMBOLISM [None]
  - PNEUMONIA [None]
  - CHEST PAIN [None]
